FAERS Safety Report 5709389-4 (Version None)
Quarter: 2008Q2

REPORT INFORMATION
  Report Type: 
  Country: None (occurrence: None)
  Receive Date: 20080417
  Receipt Date: 20080417
  Transmission Date: 20081010
  Serious: Yes (Other)
  Sender: FDA-Public Use
  Company Number: None

PATIENT
  Sex: Male
  Weight: 108.8633 kg

DRUGS (1)
  1. ZETIA [Suspect]
     Indication: LOW DENSITY LIPOPROTEIN INCREASED
     Dosage: ? 1 PILL 1 PER DAY ORALLY
     Route: 048

REACTIONS (3)
  - ADHESION [None]
  - MUSCLE SPASMS [None]
  - TENDON DISORDER [None]
